FAERS Safety Report 9702779 (Version 8)
Quarter: 2015Q4

REPORT INFORMATION
  Report Type: Spontaneous
  Country: US (occurrence: US)
  Receive Date: 20131121
  Receipt Date: 20151116
  Transmission Date: 20160305
  Serious: Yes (Death, Life-Threatening, Hospitalization, Other)
  Sender: FDA-Public Use
  Company Number: US-GLAXOSMITHKLINE-A1050296A

PATIENT
  Sex: Female
  Weight: 80 kg

DRUGS (4)
  1. FLOLAN [Suspect]
     Active Substance: EPOPROSTENOL SODIUM
     Dosage: 30 DF, CO
     Dates: start: 20081013
  2. FLOLAN [Suspect]
     Active Substance: EPOPROSTENOL SODIUM
     Dosage: UNK
     Dates: start: 20081015
  3. FLOLAN [Suspect]
     Active Substance: EPOPROSTENOL SODIUM
     Dosage: 30 DF, CO
     Dates: start: 20081013
  4. FLOLAN [Suspect]
     Active Substance: EPOPROSTENOL SODIUM
     Indication: PULMONARY ARTERIAL HYPERTENSION
     Dosage: DOSE: 29 NG/KG/MINCONCENTRATION: 45,000 NG/MLVIAL STRENGTH: 1.5 MG30 NG/KG/MIN, CONC: 45,000 NG[...]
     Route: 042
     Dates: start: 20081013

REACTIONS (7)
  - Hypoxia [Fatal]
  - Pneumonia [Fatal]
  - Dyspnoea [Unknown]
  - Terminal state [Fatal]
  - Endotracheal intubation [Not Recovered/Not Resolved]
  - Oxygen saturation decreased [Unknown]
  - Dehydration [Unknown]
